FAERS Safety Report 6521719-2 (Version None)
Quarter: 2009Q4

REPORT INFORMATION
  Report Type: 
  Country: None (occurrence: None)
  Receive Date: 20091222
  Receipt Date: 20091217
  Transmission Date: 20100525
  Serious: Yes (Death)
  Sender: FDA-Public Use
  Company Number: ALL1-2009-04050

PATIENT

DRUGS (2)
  1. FOSRENOL [Suspect]
     Indication: HYPERPHOSPHATAEMIA
     Dosage: ORAL
     Route: 048
     Dates: end: 20090101
  2. FOSRENOL [Suspect]
     Indication: RENAL DISORDER
     Dosage: ORAL
     Route: 048
     Dates: end: 20090101

REACTIONS (1)
  - ADVERSE EVENT [None]
